FAERS Safety Report 5041011-5 (Version None)
Quarter: 2006Q3

REPORT INFORMATION
  Report Type: 
  Country: None (occurrence: None)
  Receive Date: 20060703
  Receipt Date: 20060112
  Transmission Date: 20061208
  Serious: No
  Sender: FDA-Public Use
  Company Number: US-GLAXOSMITHKLINE-A0589510A

PATIENT
  Age: 55 Year
  Sex: Male
  Weight: 90.9 kg

DRUGS (6)
  1. PARNATE [Suspect]
     Indication: BIPOLAR DISORDER
     Dosage: 6TAB PER DAY
     Route: 048
     Dates: end: 20060113
  2. WELLBUTRIN [Suspect]
     Indication: DRUG USE FOR UNKNOWN INDICATION
     Route: 065
     Dates: end: 20060113
  3. TRAZODONE HCL [Concomitant]
  4. LITHIUM CARBONATE [Concomitant]
  5. ASPIRIN [Concomitant]
  6. ACIPHEX [Concomitant]

REACTIONS (7)
  - DRUG INEFFECTIVE [None]
  - FEELING ABNORMAL [None]
  - HEADACHE [None]
  - PAIN [None]
  - THINKING ABNORMAL [None]
  - TREATMENT NONCOMPLIANCE [None]
  - TREMOR [None]
